FAERS Safety Report 11538656 (Version 1)
Quarter: 2015Q3

REPORT INFORMATION
  Report Type: Spontaneous
  Country: DE (occurrence: None)
  Receive Date: 20150921
  Receipt Date: 20150921
  Transmission Date: 20151125
  Serious: Yes (Hospitalization)
  Sender: FDA-Public Use
  Company Number: DE-2015-3799

PATIENT
  Age: 79 Year
  Sex: Female

DRUGS (15)
  1. TOREM (TORASEMIDE) [Concomitant]
     Active Substance: TORSEMIDE
  2. METOPROLOLTARTRAT HEXAL (METOPROLOL TARTRATE) [Concomitant]
  3. ASPIRIN. [Concomitant]
     Active Substance: ASPIRIN
  4. ACETYLCYSTEINE. [Concomitant]
     Active Substance: ACETYLCYSTEINE
  5. LETROZOL [Concomitant]
     Active Substance: LETROZOLE
  6. DIGIMERCK (DIGITOXIN) [Concomitant]
  7. ATORVASTATIN (ATORVASTATIN CALCIUM) [Concomitant]
  8. ENDOXAN (CYCLOPHOSPHAMIDE) [Suspect]
     Active Substance: CYCLOPHOSPHAMIDE
     Indication: PRODUCT USED FOR UNKNOWN INDICATION
     Dosage: 6 CYCLES
     Dates: start: 2005
  9. EPIRUBICIN (EPIRUBICIN) [Suspect]
     Active Substance: EPIRUBICIN
     Indication: PRODUCT USED FOR UNKNOWN INDICATION
  10. ELIQUIS [Concomitant]
     Active Substance: APIXABAN
  11. NAVELBINE [Suspect]
     Active Substance: VINORELBINE TARTRATE
     Indication: PRODUCT USED FOR UNKNOWN INDICATION
     Dosage: 26 MG CYCLICAL (3 CYCLES)
     Dates: start: 20150401, end: 20150506
  12. ZOLEDRONIC ACID [Concomitant]
     Active Substance: ZOLEDRONIC ACID
  13. PANTOPRAZOLE SODIUM SESQUIHYDRATE [Concomitant]
     Active Substance: PANTOPRAZOLE SODIUM
  14. DUROGESIC (FENTANYL) [Concomitant]
     Active Substance: FENTANYL
  15. DALTEPARIN SODIUM [Concomitant]
     Active Substance: DALTEPARIN SODIUM

REACTIONS (6)
  - Dizziness [None]
  - Dysphagia [None]
  - Metastases to bone [None]
  - Condition aggravated [None]
  - Pleural effusion [None]
  - Metastases to liver [None]

NARRATIVE: CASE EVENT DATE: 201501
